FAERS Safety Report 8482363-3 (Version None)
Quarter: 2012Q3

REPORT INFORMATION
  Report Type: 
  Country: None (occurrence: None)
  Receive Date: 20120702
  Receipt Date: 20120627
  Transmission Date: 20120928
  Serious: Yes (Hospitalization, Other)
  Sender: FDA-Public Use
  Company Number: US-SANOFI-AVENTIS-2012SA045794

PATIENT
  Sex: Male

DRUGS (7)
  1. GLYBURIDE [Suspect]
  2. METOPROLOL [Concomitant]
  3. BUMEX [Concomitant]
  4. LANTUS [Suspect]
     Dosage: DOSAGE 35 TO 40 UNITS TWICE DAILY.
     Route: 058
  5. BYETTA [Suspect]
  6. METFORMIN HCL [Suspect]
  7. SPIRONOLACTONE [Concomitant]

REACTIONS (3)
  - RENAL FAILURE [None]
  - LIMB INJURY [None]
  - BLOOD GLUCOSE INCREASED [None]
